FAERS Safety Report 6838007-7 (Version None)
Quarter: 2010Q3

REPORT INFORMATION
  Report Type: 
  Country: None (occurrence: None)
  Receive Date: 20100713
  Receipt Date: 20070530
  Transmission Date: 20110219
  Serious: No
  Sender: FDA-Public Use
  Company Number: US-PFIZER INC-2007042544

PATIENT
  Sex: Female
  Weight: 59 kg

DRUGS (6)
  1. CHANTIX [Suspect]
     Indication: SMOKING CESSATION THERAPY
     Dates: start: 20070514
  2. XANAX [Concomitant]
  3. ZYRTEC [Concomitant]
  4. VYTORIN [Concomitant]
  5. TRAZODONE HYDROCHLORIDE [Concomitant]
  6. VITAMINS [Concomitant]

REACTIONS (4)
  - DIZZINESS [None]
  - EUPHORIC MOOD [None]
  - FEELING DRUNK [None]
  - NAUSEA [None]
